FAERS Safety Report 24529627 (Version 2)
Quarter: 2024Q4

REPORT INFORMATION
  Report Type: Spontaneous
  Country: EG (occurrence: EG)
  Receive Date: 20241021
  Receipt Date: 20241213
  Transmission Date: 20250115
  Serious: Yes (Other)
  Sender: ELI LILLY AND COMPANY
  Company Number: EG-ELI_LILLY_AND_COMPANY-EG202410012553

PATIENT
  Age: 30 Year
  Sex: Female

DRUGS (3)
  1. HUMULIN R [Suspect]
     Active Substance: INSULIN HUMAN
     Indication: Type 1 diabetes mellitus
     Dosage: 15 INTERNATIONAL UNIT, TID (10- 15 IU)
     Route: 058
     Dates: start: 1986
  2. HUMULIN N [Suspect]
     Active Substance: INSULIN HUMAN
     Indication: Insulin-requiring type 2 diabetes mellitus
     Dosage: UNK UNK, UNKNOWN
     Route: 065
     Dates: start: 1986, end: 2013
  3. LANTUS [Concomitant]
     Active Substance: INSULIN GLARGINE
     Indication: Type 1 diabetes mellitus
     Dosage: UNK
     Dates: start: 2014

REACTIONS (5)
  - Eating disorder [Recovered/Resolved]
  - Hypoglycaemic coma [Recovered/Resolved]
  - Hypothyroidism [Not Recovered/Not Resolved]
  - Maternal exposure during pregnancy [Recovered/Resolved]
  - Off label use [Recovered/Resolved]

NARRATIVE: CASE EVENT DATE: 20150101
